FAERS Safety Report 9512941 (Version 3)
Quarter: 2014Q1

REPORT INFORMATION
  Report Type: Spontaneous
  Country: US (occurrence: US)
  Receive Date: 20130910
  Receipt Date: 20140214
  Transmission Date: 20141002
  Serious: Yes (Other)
  Sender: FDA-Public Use
  Company Number: US-ASTELLAS-2013US008956

PATIENT
  Age: 71 Year
  Sex: Male

DRUGS (2)
  1. XTANDI [Suspect]
     Indication: PROSTATE CANCER
     Dosage: 160 MG, UID/QD
     Route: 048
     Dates: start: 20130509
  2. XTANDI [Suspect]
     Indication: BLADDER CANCER
     Dosage: 160 MG, UID/QD
     Route: 048

REACTIONS (4)
  - Off label use [Unknown]
  - Drug dose omission [Unknown]
  - Surgery [Unknown]
  - Stent placement [Unknown]
